FAERS Safety Report 10090461 (Version 1)
Quarter: 2014Q2

REPORT INFORMATION
  Report Type: Spontaneous
  Country: DE (occurrence: DE)
  Receive Date: 20140421
  Receipt Date: 20140421
  Transmission Date: 20141212
  Serious: Yes (Life-Threatening, Hospitalization)
  Sender: FDA-Public Use
  Company Number: DE-WATSON-2014-07571

PATIENT
  Age: 28 Day
  Sex: Male
  Weight: 3 kg

DRUGS (3)
  1. CITALOPRAM (UNKNOWN) [Suspect]
     Indication: FOETAL EXPOSURE TIMING UNSPECIFIED
     Dosage: 40 MG, DAILY
     Route: 064
  2. KEPPRA [Suspect]
     Indication: FOETAL EXPOSURE TIMING UNSPECIFIED
     Dosage: 500 MG, BID
     Route: 064
  3. L-THYROXIN [Concomitant]
     Indication: FOETAL EXPOSURE TIMING UNSPECIFIED
     Dosage: 500 MG, BID
     Route: 064

REACTIONS (2)
  - Persistent foetal circulation [Recovered/Resolved]
  - Foetal exposure during pregnancy [Recovered/Resolved]
